FAERS Safety Report 8919848 (Version 1)
Quarter: 2012Q4

REPORT INFORMATION
  Report Type: 
  Country: IT (occurrence: IT)
  Receive Date: 20121121
  Receipt Date: 20121121
  Transmission Date: 20130627
  Serious: Yes (Hospitalization)
  Sender: FDA-Public Use
  Company Number: IT-PFIZER INC-2012289197

PATIENT
  Age: 70 Year
  Sex: Male

DRUGS (8)
  1. TRIAZOLAM [Suspect]
     Dosage: 5 mg, single
     Route: 048
     Dates: start: 20121107, end: 20121107
  2. CARDIOASPIRIN [Suspect]
     Dosage: 300 mg, single
     Route: 048
     Dates: start: 20121107, end: 20121107
  3. QUINAPRIL/HYDROCHLOROTHIAZIDE EG [Concomitant]
     Dosage: UNK
  4. TORVAST [Concomitant]
     Dosage: UNK
  5. CARVEDILOL ACTAVIS [Concomitant]
     Dosage: UNK
  6. XERISTAR [Concomitant]
     Dosage: UNK
  7. MIRTAZAPINA ACTAVIS [Concomitant]
     Dosage: UNK
  8. DERMATRANS [Concomitant]
     Route: 065

REACTIONS (4)
  - Intentional overdose [Recovering/Resolving]
  - Hypokalaemia [Recovering/Resolving]
  - Rhonchi [Recovering/Resolving]
  - Sopor [Recovering/Resolving]
